FAERS Safety Report 23657326 (Version 1)
Quarter: 2024Q1

REPORT INFORMATION
  Report Type: Spontaneous
  Country: US (occurrence: US)
  Receive Date: 20240321
  Receipt Date: 20240321
  Transmission Date: 20240409
  Serious: Yes (Hospitalization)
  Sender: FDA-Public Use
  Company Number: US-MYLANLABS-2024M1026131

PATIENT
  Age: 73 Year
  Sex: Male

DRUGS (1)
  1. HYDROCORTISONE [Suspect]
     Active Substance: HYDROCORTISONE
     Indication: Addison^s disease
     Dosage: UNK
     Route: 065

REACTIONS (4)
  - Infection reactivation [Recovering/Resolving]
  - Histoplasmosis [Recovering/Resolving]
  - Osteomyelitis [Recovering/Resolving]
  - Comminuted fracture [Recovering/Resolving]
